FAERS Safety Report 17656066 (Version 1)
Quarter: 2020Q2

REPORT INFORMATION
  Report Type: Spontaneous
  Country: FR (occurrence: FR)
  Receive Date: 20200410
  Receipt Date: 20200410
  Transmission Date: 20200713
  Serious: Yes (Death)
  Sender: FDA-Public Use
  Company Number: FR-TEVA-2020-FR-1222065

PATIENT
  Age: 14 Year
  Sex: Male
  Weight: 109.1 kg

DRUGS (7)
  1. AMSALYO 75 MG, POUDRE POUR SOLUTION POUR PERFUSION [Suspect]
     Active Substance: AMSACRINE
     Indication: ACUTE MYELOID LEUKAEMIA
     Route: 042
     Dates: start: 20151112, end: 20151115
  2. ETOPOPHOS [Suspect]
     Active Substance: ETOPOSIDE PHOSPHATE
     Indication: ACUTE MYELOID LEUKAEMIA
     Route: 042
     Dates: start: 20151215, end: 20151218
  3. METHOTREXATE. [Suspect]
     Active Substance: METHOTREXATE
     Indication: ACUTE MYELOID LEUKAEMIA
     Dosage: 15MG
     Route: 037
     Dates: start: 20150928, end: 20150928
  4. KIDROLASE 10 000 U.I., POUDRE ET SOLVANT POUR SOLUTION INJECTABLE [Suspect]
     Active Substance: ASPARAGINASE
     Indication: ACUTE MYELOID LEUKAEMIA
     Route: 030
     Dates: start: 20160112, end: 20160121
  5. MITOXANTRONE BASE [Suspect]
     Active Substance: MITOXANTRONE HYDROCHLORIDE
     Indication: ACUTE MYELOID LEUKAEMIA
     Dosage: 19MG
     Route: 042
     Dates: start: 20150928, end: 20151002
  6. CYTARABINE. [Suspect]
     Active Substance: CYTARABINE
     Dosage: 30MG
     Route: 037
     Dates: start: 20150928, end: 20150928
  7. CYTARABINE. [Suspect]
     Active Substance: CYTARABINE
     Indication: ACUTE MYELOID LEUKAEMIA
     Route: 042
     Dates: start: 20150928, end: 20160120

REACTIONS (1)
  - Acute lymphocytic leukaemia [Fatal]

NARRATIVE: CASE EVENT DATE: 20181221
